FAERS Safety Report 8404871 (Version 3)
Quarter: 2018Q4

REPORT INFORMATION
  Report Type: Spontaneous
  Country: US (occurrence: US)
  Receive Date: 20120214
  Receipt Date: 20181027
  Transmission Date: 20190205
  Serious: Yes (Other)
  Sender: FDA-Public Use
  Company Number: US-ROCHE-1039471

PATIENT
  Age: 87 Year
  Sex: Male

DRUGS (6)
  1. OFLOXACIN. [Concomitant]
     Active Substance: OFLOXACIN
  2. RANIBIZUMAB. [Suspect]
     Active Substance: RANIBIZUMAB
     Indication: NEOVASCULAR AGE-RELATED MACULAR DEGENERATION
     Route: 050
     Dates: start: 200608
  3. PROPARACAINE [Concomitant]
     Active Substance: PROPARACAINE
  4. POVIDONE-IODINE. [Concomitant]
     Active Substance: POVIDONE-IODINE
  5. RANIBIZUMAB. [Suspect]
     Active Substance: RANIBIZUMAB
     Route: 050
     Dates: start: 201008
  6. BEVACIZUMAB. [Suspect]
     Active Substance: BEVACIZUMAB
     Indication: NEOVASCULAR AGE-RELATED MACULAR DEGENERATION
     Dosage: 0.125MG/0.05 ML
     Route: 050
     Dates: start: 200510

REACTIONS (3)
  - Pyogenic granuloma [Unknown]
  - Intentional product use issue [Unknown]
  - Off label use [Unknown]
